FAERS Safety Report 7622363-6 (Version None)
Quarter: 2011Q3

REPORT INFORMATION
  Report Type: 
  Country: None (occurrence: None)
  Receive Date: 20110720
  Receipt Date: 20110715
  Transmission Date: 20111222
  Serious: No
  Sender: FDA-Public Use
  Company Number: US-TEVA-290999USA

PATIENT
  Sex: Female
  Weight: 68.554 kg

DRUGS (2)
  1. PLAN B ONE-STEP [Suspect]
     Indication: POST COITAL CONTRACEPTION
     Dosage: 1.5 MILLIGRAM;
     Route: 048
     Dates: start: 20110701, end: 20110701
  2. ANTIBIOTIC [Concomitant]
     Indication: URINARY TRACT INFECTION

REACTIONS (5)
  - DIARRHOEA [None]
  - FLATULENCE [None]
  - MUSCLE SPASMS [None]
  - MENSTRUATION IRREGULAR [None]
  - BREAST PAIN [None]
